FAERS Safety Report 8576420-0 (Version None)
Quarter: 2012Q3

REPORT INFORMATION
  Report Type: 
  Country: None (occurrence: None)
  Receive Date: 20120725
  Receipt Date: 20120717
  Transmission Date: 20120928
  Serious: Yes (Other)
  Sender: FDA-Public Use
  Company Number: 2012P1049940

PATIENT
  Age: 65 Year
  Sex: Female

DRUGS (3)
  1. AMBIEN [Suspect]
     Indication: INSOMNIA
     Dosage: 10 MG;HS;
     Dates: start: 20120701, end: 20120701
  2. RESTORIL [Suspect]
     Indication: INSOMNIA
     Dosage: 15 MG; 30 MG;
     Dates: start: 20120101, end: 20120101
  3. SECONAL SODIUM [Suspect]
     Indication: INSOMNIA
     Dates: start: 19690101, end: 19920101

REACTIONS (5)
  - HEPATITIS POST TRANSFUSION [None]
  - CRYOGLOBULINAEMIA [None]
  - DRUG INEFFECTIVE [None]
  - HEPATITIS C [None]
  - RETINAL VEIN OCCLUSION [None]
